FAERS Safety Report 14107361 (Version 1)
Quarter: 2017Q4

REPORT INFORMATION
  Report Type: Spontaneous
  Country: US (occurrence: US)
  Receive Date: 20171019
  Receipt Date: 20171019
  Transmission Date: 20180321
  Serious: Yes (Disabling)
  Sender: FDA-Public Use
  Company Number: None

PATIENT
  Age: 33 Year
  Sex: Female
  Weight: 99 kg

DRUGS (2)
  1. BUPROPION SR 150MG TABLETS [Suspect]
     Active Substance: BUPROPION
     Route: 048
  2. SERTRALINE [Concomitant]
     Active Substance: SERTRALINE HYDROCHLORIDE

REACTIONS (3)
  - Visual acuity reduced [None]
  - Disturbance in attention [None]
  - Polymenorrhoea [None]
